FAERS Safety Report 5429390-8 (Version None)
Quarter: 2007Q3

REPORT INFORMATION
  Report Type: 
  Country: None (occurrence: None)
  Receive Date: 20070829
  Receipt Date: 20070828
  Transmission Date: 20080115
  Serious: Yes (Hospitalization)
  Sender: FDA-Public Use
  Company Number: A0666634A

PATIENT
  Age: 58 Year
  Sex: Female

DRUGS (1)
  1. CONTAC-D COLD [Suspect]
     Route: 048
     Dates: start: 20070707, end: 20070707

REACTIONS (5)
  - ACTIVITIES OF DAILY LIVING IMPAIRED [None]
  - DRUG INEFFECTIVE [None]
  - EXPIRED DRUG ADMINISTERED [None]
  - HEART RATE INCREASED [None]
  - POOR QUALITY SLEEP [None]
